FAERS Safety Report 7060218-9 (Version None)
Quarter: 2010Q4

REPORT INFORMATION
  Report Type: 
  Country: None (occurrence: None)
  Receive Date: 20101025
  Receipt Date: 20070921
  Transmission Date: 20110411
  Serious: Yes (Other)
  Sender: FDA-Public Use
  Company Number: US-MERCK-0707USA02577

PATIENT
  Age: 72 Year
  Sex: Male

DRUGS (4)
  1. ZOLINZA [Suspect]
     Indication: MYCOSIS FUNGOIDES
     Route: 048
     Dates: start: 20070518, end: 20070705
  2. ZOLINZA [Suspect]
     Route: 048
     Dates: start: 20070705, end: 20070721
  3. CELEBREX [Concomitant]
     Route: 065
  4. CYCLOBENZAPRINE HYDROCHLORIDE [Concomitant]
     Route: 065

REACTIONS (8)
  - DECREASED APPETITE [None]
  - DEHYDRATION [None]
  - DIZZINESS [None]
  - FATIGUE [None]
  - FEELING COLD [None]
  - MALAISE [None]
  - NAUSEA [None]
  - WEIGHT DECREASED [None]
